FAERS Safety Report 4468891-6 (Version None)
Quarter: 2004Q3

REPORT INFORMATION
  Report Type: 
  Country: None (occurrence: None)
  Receive Date: 20040917
  Receipt Date: 20040605
  Transmission Date: 20050211
  Serious: No
  Sender: FDA-Public Use
  Company Number: US-JNJFOC-20040602555

PATIENT
  Sex: Female

DRUGS (1)
  1. ORTHO EVRA [Suspect]
     Indication: CONTRACEPTION
     Dosage: 1 DOSE(S) 3 IN 4 WEEK, TRANSDERMAL
     Route: 062

REACTIONS (3)
  - BREAST TENDERNESS [None]
  - SEXUAL DYSFUNCTION [None]
  - VAGINAL HAEMORRHAGE [None]
